FAERS Safety Report 12157321 (Version 2)
Quarter: 2016Q1

REPORT INFORMATION
  Report Type: Report from Study
  Country: LB (occurrence: LB)
  Receive Date: 20160308
  Receipt Date: 20160317
  Transmission Date: 20160526
  Serious: Yes (Hospitalization)
  Sender: FDA-Public Use
  Company Number: LB-ABBVIE-16K-093-1539053-00

PATIENT
  Age: 49 Year
  Sex: Female
  Weight: 95 kg

DRUGS (3)
  1. HUMIRA [Suspect]
     Active Substance: ADALIMUMAB
     Indication: RHEUMATOID ARTHRITIS
     Route: 058
     Dates: start: 201508, end: 201510
  2. HUMIRA [Suspect]
     Active Substance: ADALIMUMAB
     Indication: COLITIS ULCERATIVE
  3. HUMIRA [Suspect]
     Active Substance: ADALIMUMAB
     Indication: ANKYLOSING SPONDYLITIS

REACTIONS (2)
  - Respiratory disorder [Not Recovered/Not Resolved]
  - Abdominal pain upper [Not Recovered/Not Resolved]
